FAERS Safety Report 23965188 (Version 1)
Quarter: 2024Q2

REPORT INFORMATION
  Report Type: Other
  Country: AT (occurrence: None)
  Receive Date: 20240612
  Receipt Date: 20240612
  Transmission Date: 20240716
  Serious: Yes (Hospitalization, Other)
  Sender: FDA-Public Use
  Company Number: AT-ROCHE-3578154

PATIENT

DRUGS (4)
  1. RITUXIMAB [Suspect]
     Active Substance: RITUXIMAB
     Indication: Systemic scleroderma
     Dosage: AT DAYS 0 AND 14
     Route: 041
  2. MYCOPHENOLATE MOFETIL [Suspect]
     Active Substance: MYCOPHENOLATE MOFETIL
     Indication: Systemic scleroderma
     Route: 065
  3. METHOTREXATE [Suspect]
     Active Substance: METHOTREXATE
     Indication: Systemic scleroderma
     Dosage: 5-10 MG/WEEK
     Route: 065
  4. AZATHIOPRINE [Suspect]
     Active Substance: AZATHIOPRINE
     Indication: Systemic scleroderma
     Route: 065

REACTIONS (12)
  - Pneumonia [Unknown]
  - Raoultella ornithinolytica infection [Unknown]
  - Cytokine release syndrome [Unknown]
  - Cellulitis orbital [Unknown]
  - Rhinitis [Unknown]
  - Ear infection [Unknown]
  - Sinusitis [Unknown]
  - Bronchitis [Unknown]
  - Cystitis [Unknown]
  - Oral herpes [Unknown]
  - Gastroenteritis [Unknown]
  - Upper respiratory tract infection [Unknown]
